FAERS Safety Report 23209777 (Version 2)
Quarter: 2023Q4

REPORT INFORMATION
  Report Type: Spontaneous
  Country: FR (occurrence: FR)
  Receive Date: 20231121
  Receipt Date: 20231202
  Transmission Date: 20240109
  Serious: Yes (Hospitalization, Other)
  Sender: FDA-Public Use
  Company Number: FR-AFSSAPS-PV2023001042

PATIENT
  Age: 18 Year
  Sex: Male
  Weight: 62 kg

DRUGS (12)
  1. PREDNISONE [Suspect]
     Active Substance: PREDNISONE
     Indication: B-cell lymphoma
     Dosage: UNK (POSOLOGY NOT REPORTED C1 26/09/2023 C2 12/10/2023)
     Route: 048
     Dates: start: 20230926
  2. PREDNISONE [Suspect]
     Active Substance: PREDNISONE
     Indication: Primary mediastinal large B-cell lymphoma
     Dosage: UNK (POSOLOGY NOT REPORTED C1 26/09/2023 C2 12/10/2023)
     Route: 048
     Dates: start: 20231012
  3. DOXORUBICIN [Suspect]
     Active Substance: DOXORUBICIN
     Indication: B-cell lymphoma
     Dosage: UNK (POSOLOGY NOT REPORTED C1 26/09/2023 C2 12/10/2023)
     Route: 042
     Dates: start: 20230926
  4. DOXORUBICIN [Suspect]
     Active Substance: DOXORUBICIN
     Indication: Primary mediastinal large B-cell lymphoma
     Dosage: UNK (POSOLOGY NOT REPORTED C1 26/09/2023 C2 12/10/2023)
     Route: 042
     Dates: start: 20231012
  5. BACTRIM [Suspect]
     Active Substance: SULFAMETHOXAZOLE\TRIMETHOPRIM
     Indication: Prophylaxis
     Dosage: 1 DOSAGE FORM, EVERY OTHER DAY
     Route: 048
     Dates: start: 20230926, end: 20231013
  6. CYCLOPHOSPHAMIDE [Suspect]
     Active Substance: CYCLOPHOSPHAMIDE
     Indication: B-cell lymphoma
     Dosage: UNK (POSOLOGY NOT REPORTED C1 26/09/2023 C2 12/10/2023)
     Route: 042
     Dates: start: 20230926
  7. CYCLOPHOSPHAMIDE [Suspect]
     Active Substance: CYCLOPHOSPHAMIDE
     Indication: Primary mediastinal large B-cell lymphoma
     Dosage: UNK (POSOLOGY NOT REPORTED C1 26/09/2023 C2 12/10/2023)
     Route: 042
     Dates: start: 20231012
  8. RITUXIMAB [Suspect]
     Active Substance: RITUXIMAB
     Indication: B-cell lymphoma
     Dosage: UNK (POSOLOGY NOT REPORTED C1 26/09/2023 C2 12/10/2023)
     Route: 042
     Dates: start: 20230926
  9. RITUXIMAB [Suspect]
     Active Substance: RITUXIMAB
     Indication: Primary mediastinal large B-cell lymphoma
     Dosage: UNK (POSOLOGY NOT REPORTED C1 26/09/2023 C2 12/10/2023)
     Route: 042
     Dates: start: 20231012
  10. VINCRISTINE [Suspect]
     Active Substance: VINCRISTINE
     Indication: B-cell lymphoma
     Dosage: UNK (POSOLOGY NOT REPORTED C1 26/09/2023 C2 12/10/2023)
     Route: 042
     Dates: start: 20230926
  11. VINCRISTINE [Suspect]
     Active Substance: VINCRISTINE
     Indication: Primary mediastinal large B-cell lymphoma
     Dosage: UNK (POSOLOGY NOT REPORTED C1 26/09/2023 C2 12/10/2023)
     Route: 042
     Dates: start: 20231012
  12. SULFAMETHOXAZOLE AND TRIMETHOPRIM [Suspect]
     Active Substance: SULFAMETHOXAZOLE\TRIMETHOPRIM
     Indication: Prophylaxis
     Dosage: 1 DOSAGE FORM, TWO TIMES A DAY
     Route: 048
     Dates: start: 20230926, end: 20231013

REACTIONS (5)
  - Pancreatitis acute [Recovered/Resolved]
  - Enterocolitis viral [Unknown]
  - Headache [Unknown]
  - Hepatic cytolysis [Unknown]
  - Hyperleukocytosis [Unknown]

NARRATIVE: CASE EVENT DATE: 20230927
